FAERS Safety Report 8436442-7 (Version None)
Quarter: 2012Q2

REPORT INFORMATION
  Report Type: 
  Country: None (occurrence: None)
  Receive Date: 20120614
  Receipt Date: 20110414
  Transmission Date: 20120825
  Serious: No
  Sender: FDA-Public Use
  Company Number: US-NOVEN-11US002272

PATIENT
  Sex: Female
  Weight: 20.862 kg

DRUGS (2)
  1. DAYTRANA [Suspect]
     Indication: ATTENTION DEFICIT/HYPERACTIVITY DISORDER
     Dosage: 10 MG, QD
     Route: 062
     Dates: start: 20110414
  2. ZYRTEC [Concomitant]
     Indication: HYPERSENSITIVITY
     Dosage: 0.5,TSP, QD
     Route: 048

REACTIONS (5)
  - AGITATION [None]
  - IRRITABILITY [None]
  - OFF LABEL USE [None]
  - DISTURBANCE IN SOCIAL BEHAVIOUR [None]
  - LOGORRHOEA [None]
